FAERS Safety Report 9642912 (Version 2)
Quarter: 2013Q4

REPORT INFORMATION
  Report Type: Report from Study
  Country: IN (occurrence: IN)
  Receive Date: 20131024
  Receipt Date: 20131119
  Transmission Date: 20140711
  Serious: Yes (Death, Hospitalization)
  Sender: FDA-Public Use
  Company Number: PHHY2013IN119393

PATIENT
  Age: 33 Year
  Sex: Male

DRUGS (2)
  1. SIMULECT [Suspect]
     Indication: RENAL TRANSPLANT
     Dosage: 20 MG, UNK
     Route: 042
     Dates: start: 20130725
  2. SIMULECT [Suspect]
     Dosage: 20 MG, UNK
     Route: 042
     Dates: start: 20130729

REACTIONS (3)
  - Death [Fatal]
  - Kidney transplant rejection [Unknown]
  - Renal tubular necrosis [Unknown]
